FAERS Safety Report 8116380-X (Version None)
Quarter: 2012Q1

REPORT INFORMATION
  Report Type: 
  Country: None (occurrence: None)
  Receive Date: 20120206
  Receipt Date: 20120131
  Transmission Date: 20120608
  Serious: Yes (Hospitalization)
  Sender: FDA-Public Use
  Company Number: IT-GLAXOSMITHKLINE-B0777164A

PATIENT
  Sex: Male

DRUGS (5)
  1. LENDORMIN [Suspect]
     Indication: DRUG ABUSE
     Route: 048
     Dates: start: 20120104, end: 20120104
  2. CITALOPRAM HYDROBROMIDE [Concomitant]
     Indication: PRODUCT USED FOR UNKNOWN INDICATION
     Route: 048
  3. SEROQUEL [Concomitant]
     Indication: PRODUCT USED FOR UNKNOWN INDICATION
     Route: 048
  4. PROPAFENONE HCL [Suspect]
     Indication: DRUG ABUSE
     Route: 048
     Dates: start: 20120104, end: 20120104
  5. LORAZEPAM [Suspect]
     Indication: DRUG ABUSE
     Route: 048
     Dates: start: 20120104, end: 20120104

REACTIONS (2)
  - BRADYPHRENIA [None]
  - DRUG ABUSE [None]
